FAERS Safety Report 6637084-6 (Version None)
Quarter: 2010Q1

REPORT INFORMATION
  Report Type: 
  Country: None (occurrence: None)
  Receive Date: 20100316
  Receipt Date: 20100305
  Transmission Date: 20100710
  Serious: Yes (Hospitalization)
  Sender: FDA-Public Use
  Company Number: JP-ROCHE-690799

PATIENT
  Sex: Female

DRUGS (5)
  1. TOCILIZUMAB [Suspect]
     Indication: RHEUMATOID ARTHRITIS
     Route: 041
     Dates: start: 20090717
  2. HYPEN [Suspect]
     Route: 048
  3. VESICARE [Suspect]
     Route: 048
  4. PREDNISOLONE [Suspect]
     Dosage: DOSE FORM: PERORAL AGENT
     Route: 048
  5. CYTOTEC [Suspect]
     Route: 048

REACTIONS (1)
  - ANAEMIA [None]
